FAERS Safety Report 9826020 (Version 1)
Quarter: 2014Q1

REPORT INFORMATION
  Report Type: Spontaneous
  Country: IT (occurrence: IT)
  Receive Date: 20140117
  Receipt Date: 20140117
  Transmission Date: 20141002
  Serious: Yes (Other)
  Sender: FDA-Public Use
  Company Number: IT-ASTELLAS-2014EU000226

PATIENT
  Age: 13 Year
  Sex: Male

DRUGS (7)
  1. TACROLIMUS SYSTEMIC [Suspect]
     Indication: NEPHROTIC SYNDROME
     Dosage: 0.1 MG/KG, UNKNOWN/D
     Route: 065
  2. TACROLIMUS SYSTEMIC [Suspect]
     Indication: RENAL TRANSPLANT
     Dosage: 0.3 MG/KG, Q12 HOURS
     Route: 048
  3. MYCOPHENOLIC ACID [Suspect]
     Indication: RENAL TRANSPLANT
     Dosage: 600 MG/M2, BID
     Route: 048
  4. METHYLPREDNISOLONE [Suspect]
     Indication: RENAL TRANSPLANT
     Dosage: UNK
     Route: 042
  5. PREDNISONE [Suspect]
     Indication: RENAL TRANSPLANT
     Dosage: 1 MG/KG, UNKNOWN/D
     Route: 048
  6. PREDNISONE [Suspect]
     Dosage: 0.25 MG/KG, UNKNOWN/D
     Route: 048
  7. PREDNISONE [Suspect]
     Dosage: 0.1 MG/DAY, UNKNOWN/D
     Route: 065

REACTIONS (3)
  - Drug ineffective for unapproved indication [Unknown]
  - Nephropathy toxic [Unknown]
  - Focal segmental glomerulosclerosis [Unknown]
